FAERS Safety Report 11280218 (Version 1)
Quarter: 2015Q3

REPORT INFORMATION
  Report Type: Spontaneous
  Country: US (occurrence: US)
  Receive Date: 20150717
  Receipt Date: 20150717
  Transmission Date: 20151125
  Serious: Yes (Other)
  Sender: FDA-Public Use
  Company Number: US-JNJFOC-20130717930

PATIENT
  Age: 38 Year
  Sex: Male

DRUGS (7)
  1. CLADRIBINE. [Suspect]
     Active Substance: CLADRIBINE
     Indication: B-CELL LYMPHOMA
     Dosage: FOR 5 DAYS
     Route: 042
  2. ANTI-THYMOCYTE GLOBULIN (RABBIT) NOS [Suspect]
     Active Substance: LAPINE T-LYMPHOCYTE IMMUNE GLOBULIN
     Indication: B-CELL LYMPHOMA
     Dosage: DAY 5
     Route: 065
  3. CYCLOSPORINE. [Concomitant]
     Active Substance: CYCLOSPORINE
     Indication: IMMUNOSUPPRESSION
     Route: 042
  4. THIOTEPA. [Suspect]
     Active Substance: THIOTEPA
     Indication: B-CELL LYMPHOMA
     Route: 042
  5. CYCLOSPORINE. [Concomitant]
     Active Substance: CYCLOSPORINE
     Indication: IMMUNOSUPPRESSION
     Dosage: ON DAY -1
     Route: 042
  6. GRANULOCYTE COLONY STIMULATING FACTOR [Concomitant]
     Active Substance: GRANULOCYTE COLONY-STIMULATING FACTOR NOS
     Indication: PRODUCT USED FOR UNKNOWN INDICATION
     Route: 065
  7. THIOTEPA. [Suspect]
     Active Substance: THIOTEPA
     Indication: B-CELL LYMPHOMA
     Dosage: FOR 3 DAYS
     Route: 042

REACTIONS (4)
  - Product use issue [Unknown]
  - Anaemia [Unknown]
  - Neutropenia [Unknown]
  - Thrombocytopenia [Unknown]
